FAERS Safety Report 15779691 (Version 1)
Quarter: 2019Q1

REPORT INFORMATION
  Report Type: Spontaneous
  Country: CN (occurrence: CN)
  Receive Date: 20190101
  Receipt Date: 20190101
  Transmission Date: 20190417
  Serious: No
  Sender: FDA-Public Use
  Company Number: CN-ALKEM LABORATORIES LIMITED-CN-ALKEM-2018-00482

PATIENT
  Sex: Male

DRUGS (4)
  1. TACROLIMUS. [Suspect]
     Active Substance: TACROLIMUS
     Indication: ANGIOLYMPHOID HYPERPLASIA WITH EOSINOPHILIA
     Dosage: 1 MG, BID
     Route: 065
  2. MYCOPHENOLATE MOFETIL. [Suspect]
     Active Substance: MYCOPHENOLATE MOFETIL
     Indication: ANGIOLYMPHOID HYPERPLASIA WITH EOSINOPHILIA
     Dosage: 0.25 G, BID
     Route: 065
  3. PREDNISONE. [Suspect]
     Active Substance: PREDNISONE
     Indication: ANGIOLYMPHOID HYPERPLASIA WITH EOSINOPHILIA
     Dosage: 1 MG/KG, QD
     Route: 065
  4. LEFLUNOMIDE. [Suspect]
     Active Substance: LEFLUNOMIDE
     Indication: ANGIOLYMPHOID HYPERPLASIA WITH EOSINOPHILIA
     Dosage: UNK
     Route: 065

REACTIONS (1)
  - Drug ineffective [Unknown]
